FAERS Safety Report 10495375 (Version 2)
Quarter: 2014Q4

REPORT INFORMATION
  Report Type: Report from Study
  Country: GB (occurrence: GB)
  Receive Date: 20141003
  Receipt Date: 20141027
  Transmission Date: 20150528
  Serious: No
  Sender: FDA-Public Use
  Company Number: GB-B.I. PHARMACEUTICALS,INC./RIDGEFIELD-2014-BI-46194BI

PATIENT
  Sex: Female
  Weight: 55.8 kg

DRUGS (1)
  1. BIBW 2992 [Suspect]
     Active Substance: AFATINIB
     Indication: NON-SMALL CELL LUNG CANCER
     Dosage: 50 MG
     Route: 048
     Dates: start: 20110315

REACTIONS (1)
  - Pyogenic granuloma [Not Recovered/Not Resolved]

NARRATIVE: CASE EVENT DATE: 20140916
